FAERS Safety Report 7301305-7 (Version None)
Quarter: 2011Q1

REPORT INFORMATION
  Report Type: 
  Country: None (occurrence: None)
  Receive Date: 20110218
  Receipt Date: 20110210
  Transmission Date: 20110831
  Serious: Yes (Other)
  Sender: FDA-Public Use
  Company Number: US-GENZYME-HECT-1000124

PATIENT
  Age: 63 Year
  Sex: Male

DRUGS (1)
  1. HECTOROL [Suspect]
     Indication: HYPERPARATHYROIDISM SECONDARY
     Dosage: 8 MCG, 3X/W
     Route: 042
     Dates: start: 20101101

REACTIONS (2)
  - GANGRENE [None]
  - BLOOD PARATHYROID HORMONE INCREASED [None]
